FAERS Safety Report 7077196-9 (Version None)
Quarter: 2010Q4

REPORT INFORMATION
  Report Type: 
  Country: None (occurrence: None)
  Receive Date: 20101101
  Receipt Date: 20101021
  Transmission Date: 20110411
  Serious: Yes (Hospitalization)
  Sender: FDA-Public Use
  Company Number: B0682127A

PATIENT
  Age: 64 Year
  Sex: Female

DRUGS (7)
  1. PAROXETINE HCL [Suspect]
     Indication: DEPRESSION
     Route: 048
     Dates: start: 20080101
  2. CLOPIDOGREL [Suspect]
     Indication: INTERMITTENT CLAUDICATION
     Route: 048
     Dates: start: 20080101
  3. ASPIRIN [Suspect]
     Indication: INTERMITTENT CLAUDICATION
     Route: 048
     Dates: start: 20080101, end: 20100819
  4. ATORVASTATIN [Concomitant]
     Route: 048
  5. COZAAR [Concomitant]
     Indication: HYPERTENSION
     Route: 048
  6. METFORMIN HCL [Concomitant]
     Route: 048
  7. RANITIDINA [Concomitant]
     Route: 048

REACTIONS (2)
  - ANAEMIA [None]
  - GASTRITIS EROSIVE [None]
